FAERS Safety Report 8438555-2 (Version None)
Quarter: 2012Q2

REPORT INFORMATION
  Report Type: 
  Country: None (occurrence: None)
  Receive Date: 20120615
  Receipt Date: 20120606
  Transmission Date: 20120825
  Serious: Yes (Other)
  Sender: FDA-Public Use
  Company Number: AR-AMGEN-ARGSP2012036162

PATIENT
  Age: 49 Year
  Sex: Female

DRUGS (3)
  1. METHOTREXATE [Concomitant]
     Indication: PSORIATIC ARTHROPATHY
     Dosage: UNK
  2. LEUCOVORIN CALCIUM [Concomitant]
     Indication: PSORIATIC ARTHROPATHY
     Dosage: UNK
  3. ENBREL [Suspect]
     Indication: PSORIATIC ARTHROPATHY
     Dosage: 50 MG, WEEKLY
     Route: 058
     Dates: start: 20110712

REACTIONS (4)
  - MENTAL DISORDER [None]
  - HYPERTENSION [None]
  - TREMOR [None]
  - PSORIATIC ARTHROPATHY [None]
